FAERS Safety Report 8345855-3 (Version None)
Quarter: 2012Q2

REPORT INFORMATION
  Report Type: 
  Country: None (occurrence: None)
  Receive Date: 20120509
  Receipt Date: 20120430
  Transmission Date: 20120825
  Serious: No
  Sender: FDA-Public Use
  Company Number: US-BIOGENIDEC-2011BI045182

PATIENT
  Sex: Female

DRUGS (1)
  1. TYSABRI [Suspect]
     Indication: MULTIPLE SCLEROSIS
     Route: 042
     Dates: start: 20111107

REACTIONS (7)
  - HEADACHE [None]
  - VOMITING [None]
  - DIZZINESS [None]
  - NAUSEA [None]
  - ASTHENIA [None]
  - DIARRHOEA [None]
  - CHILLS [None]
